FAERS Safety Report 10457749 (Version 2)
Quarter: 2014Q3

REPORT INFORMATION
  Report Type: Spontaneous
  Country: US (occurrence: US)
  Receive Date: 20140916
  Receipt Date: 20140916
  Transmission Date: 20150326
  Serious: Yes (Hospitalization)
  Sender: FDA-Public Use
  Company Number: US-GLAXOSMITHKLINE-A0729676A

PATIENT
  Sex: Female
  Weight: 82.3 kg

DRUGS (15)
  1. ADVAIR HFA [Concomitant]
     Active Substance: FLUTICASONE PROPIONATE\SALMETEROL XINAFOATE
  2. CORGARD [Concomitant]
     Active Substance: NADOLOL
  3. AVANDIA [Suspect]
     Active Substance: ROSIGLITAZONE MALEATE
     Indication: TYPE 2 DIABETES MELLITUS
     Dosage: 4MG PER DAY
     Route: 048
     Dates: start: 20041018, end: 20050126
  4. IMDUR [Concomitant]
     Active Substance: ISOSORBIDE MONONITRATE
  5. COUMADIN [Concomitant]
     Active Substance: WARFARIN SODIUM
  6. ELAVIL [Concomitant]
     Active Substance: AMITRIPTYLINE HYDROCHLORIDE
  7. SYNTHROID [Concomitant]
     Active Substance: LEVOTHYROXINE SODIUM
  8. LASIX [Concomitant]
     Active Substance: FUROSEMIDE
  9. ZESTRIL [Concomitant]
     Active Substance: LISINOPRIL
  10. VYTORIN [Concomitant]
     Active Substance: EZETIMIBE\SIMVASTATIN
  11. INSULIN 70/30 [Concomitant]
     Active Substance: INSULIN HUMAN
  12. NORVASC [Concomitant]
     Active Substance: AMLODIPINE BESYLATE
  13. COZAAR [Concomitant]
     Active Substance: LOSARTAN POTASSIUM
  14. PREVACID [Concomitant]
     Active Substance: LANSOPRAZOLE
  15. FLONASE [Concomitant]
     Active Substance: FLUTICASONE PROPIONATE

REACTIONS (2)
  - Myocardial ischaemia [Unknown]
  - Cardiac failure congestive [Unknown]
